FAERS Safety Report 21539702 (Version 2)
Quarter: 2022Q4

REPORT INFORMATION
  Report Type: Report from Study
  Country: JP (occurrence: JP)
  Receive Date: 20221102
  Receipt Date: 20221107
  Transmission Date: 20230112
  Serious: Yes (Other)
  Sender: FDA-Public Use
  Company Number: JP-BRISTOL-MYERS SQUIBB COMPANY-BMS-2020-101313

PATIENT
  Age: 68 Year
  Sex: Male
  Weight: 63.4 kg

DRUGS (5)
  1. IPILIMUMAB [Suspect]
     Active Substance: IPILIMUMAB
     Indication: Metastatic renal cell carcinoma
     Dosage: ONE TIME DOSE
     Route: 041
     Dates: start: 20201009, end: 20201009
  2. IPILIMUMAB [Suspect]
     Active Substance: IPILIMUMAB
     Dosage: ONE TIME DOSE
     Route: 041
     Dates: start: 20201111, end: 20201111
  3. IPILIMUMAB [Suspect]
     Active Substance: IPILIMUMAB
  4. NIVOLUMAB [Suspect]
     Active Substance: NIVOLUMAB
     Indication: Metastatic renal cell carcinoma
     Dosage: ONE TIME DOSE
     Route: 041
     Dates: start: 20201009, end: 20201009
  5. NIVOLUMAB [Suspect]
     Active Substance: NIVOLUMAB
     Dosage: ONE TIME DOSE
     Route: 041
     Dates: start: 20201111, end: 20201111

REACTIONS (6)
  - Genital erythema [Recovered/Resolved]
  - Radiation pneumonitis [Recovering/Resolving]
  - Erythema [Recovered/Resolved]
  - Rash erythematous [Recovered/Resolved]
  - Malignant neoplasm progression [Unknown]
  - Dermatitis [Unknown]

NARRATIVE: CASE EVENT DATE: 20201117
